FAERS Safety Report 9721453 (Version 1)
Quarter: 2013Q4

REPORT INFORMATION
  Report Type: Spontaneous
  Country: US (occurrence: US)
  Receive Date: 20131129
  Receipt Date: 20131129
  Transmission Date: 20140711
  Serious: Yes (Hospitalization)
  Sender: FDA-Public Use
  Company Number: US-ASTRAZENECA-2013SE85809

PATIENT
  Age: 80 Year
  Sex: Male
  Weight: 83.9 kg

DRUGS (6)
  1. CRESTOR [Suspect]
     Indication: BLOOD CHOLESTEROL INCREASED
     Dosage: 0.5 OF 5 MG WEEKLY
     Route: 048
     Dates: start: 2008, end: 2012
  2. CRESTOR [Suspect]
     Indication: BLOOD CHOLESTEROL INCREASED
     Route: 048
     Dates: start: 2012, end: 20130919
  3. BRILINTA [Suspect]
     Indication: CAROTID ARTERY STENT INSERTION
     Route: 048
     Dates: start: 201305
  4. LEVAQUIN [Suspect]
     Indication: CYSTITIS INTERSTITIAL
     Route: 065
  5. ELMERON [Concomitant]
     Indication: CYSTITIS INTERSTITIAL
  6. OTHER UNSPECIFIED MEDICATIONS [Concomitant]

REACTIONS (16)
  - Medical device complication [Unknown]
  - Loss of consciousness [Unknown]
  - Cystitis interstitial [Unknown]
  - Exercise tolerance decreased [Not Recovered/Not Resolved]
  - Oropharyngeal pain [Not Recovered/Not Resolved]
  - Cough [Not Recovered/Not Resolved]
  - Memory impairment [Unknown]
  - Diarrhoea [Recovered/Resolved]
  - Fatigue [Not Recovered/Not Resolved]
  - Sleep disorder [Not Recovered/Not Resolved]
  - Dyspnoea [Not Recovered/Not Resolved]
  - Rash [Recovered/Resolved]
  - Dizziness [Not Recovered/Not Resolved]
  - Headache [Recovered/Resolved]
  - Nausea [Recovered/Resolved]
  - Off label use [Unknown]
